FAERS Safety Report 6051908-5 (Version None)
Quarter: 2009Q1

REPORT INFORMATION
  Report Type: 
  Country: None (occurrence: None)
  Receive Date: 20090126
  Receipt Date: 20090114
  Transmission Date: 20090719
  Serious: Yes (Other)
  Sender: FDA-Public Use
  Company Number: JP-JNJCH-2009001789

PATIENT
  Sex: Male
  Weight: 67 kg

DRUGS (1)
  1. RIUP 1% [Suspect]
     Indication: ANDROGENETIC ALOPECIA
     Dosage: TEXT:1 ML TWICE DAILY
     Route: 061
     Dates: start: 20081201, end: 20081201

REACTIONS (2)
  - ALOPECIA AREATA [None]
  - DERMATITIS CONTACT [None]
